FAERS Safety Report 4875034-3 (Version None)
Quarter: 2006Q1

REPORT INFORMATION
  Report Type: 
  Country: None (occurrence: None)
  Receive Date: 20060104
  Receipt Date: 20051228
  Transmission Date: 20060701
  Serious: Yes (Other)
  Sender: FDA-Public Use
  Company Number: 2005-07-2006

PATIENT
  Age: 48 Year
  Sex: Female

DRUGS (4)
  1. CELESTAMINE TAB [Suspect]
     Indication: PRURITUS
     Dosage: ORAL
     Route: 048
     Dates: start: 20040101
  2. . [Concomitant]
  3. PREDNISOLONE [Concomitant]
  4. SOBUZOXANE (SOBUZOXANO) [Concomitant]

REACTIONS (2)
  - ACUTE GENERALISED EXANTHEMATOUS PUSTULOSIS [None]
  - DISEASE RECURRENCE [None]
